FAERS Safety Report 16729372 (Version 1)
Quarter: 2019Q3

REPORT INFORMATION
  Report Type: Report from Study
  Country: FR (occurrence: FR)
  Receive Date: 20190822
  Receipt Date: 20190822
  Transmission Date: 20191005
  Serious: Yes (Other)
  Sender: FDA-Public Use
  Company Number: FR-PFIZER INC-2019354184

PATIENT

DRUGS (8)
  1. DEFITELIO [Suspect]
     Active Substance: DEFIBROTIDE SODIUM
     Indication: PROPHYLAXIS
  2. ACICLOVIR [Suspect]
     Active Substance: ACYCLOVIR
     Indication: PROPHYLAXIS
     Dosage: 390 MG, 1X/DAY
     Route: 042
     Dates: start: 20160908, end: 20161002
  3. HEPARIN [Concomitant]
     Active Substance: HEPARIN SODIUM
     Dosage: 0.1 ML, QD
  4. DEFITELIO [Suspect]
     Active Substance: DEFIBROTIDE SODIUM
     Indication: VENOOCCLUSIVE DISEASE
     Dosage: 24.6 MG/KG, 1X/DAY
     Route: 042
     Dates: start: 20160907, end: 20161011
  5. LOVENOX [Suspect]
     Active Substance: ENOXAPARIN SODIUM
     Indication: PROPHYLAXIS
     Dosage: 0.1 ML, 1X/DAY
     Route: 042
     Dates: start: 20160916, end: 20161008
  6. URSOFALK [Suspect]
     Active Substance: URSODIOL
     Indication: PROPHYLAXIS
     Dosage: 150 MG, 1X/DAY
     Route: 048
     Dates: start: 20160906
  7. URSODEOXYCHOLIC ACID [Concomitant]
     Active Substance: URSODIOL
     Indication: PROPHYLAXIS
  8. FLUCONAZOLE. [Suspect]
     Active Substance: FLUCONAZOLE
     Indication: ANTIFUNGAL PROPHYLAXIS
     Dosage: 150 MG, 1X/DAY
     Route: 042
     Dates: start: 20160916, end: 20161002

REACTIONS (3)
  - Haemorrhagic disorder [Recovered/Resolved]
  - Drug ineffective for unapproved indication [Recovered/Resolved]
  - Off label use [Unknown]

NARRATIVE: CASE EVENT DATE: 20160920
